FAERS Safety Report 24572245 (Version 1)
Quarter: 2024Q4

REPORT INFORMATION
  Report Type: Spontaneous
  Country: AU (occurrence: AU)
  Receive Date: 20241101
  Receipt Date: 20241101
  Transmission Date: 20250114
  Serious: No
  Sender: MERCK
  Company Number: AU-009507513-2410AUS012980

PATIENT
  Age: 81 Year
  Sex: Male

DRUGS (1)
  1. LAGEVRIO [Suspect]
     Active Substance: MOLNUPIRAVIR
     Indication: COVID-19
     Dosage: 400 MILLIGRAM, Q12H (FREQUENCY ALSO REPORTED AS QD)
     Route: 048
     Dates: start: 20241027

REACTIONS (2)
  - Headache [Unknown]
  - Incorrect dose administered [Unknown]

NARRATIVE: CASE EVENT DATE: 20241001
